FAERS Safety Report 5236964-6 (Version None)
Quarter: 2007Q1

REPORT INFORMATION
  Report Type: 
  Country: None (occurrence: None)
  Receive Date: 20070213
  Receipt Date: 20070130
  Transmission Date: 20070707
  Serious: Yes (Hospitalization)
  Sender: FDA-Public Use
  Company Number: PHBS2007TW02238

PATIENT
  Age: 73 Year
  Sex: Female

DRUGS (3)
  1. BACLOFEN [Suspect]
     Indication: HICCUPS
     Dosage: 5 MG, TID
     Route: 048
  2. GLIMEPIRIDE [Concomitant]
     Indication: DIABETIC NEUROPATHY
     Route: 065
  3. ALLOPURINOL SODIUM [Concomitant]

REACTIONS (16)
  - BLOOD CREATININE INCREASED [None]
  - BLOOD PRESSURE INCREASED [None]
  - BLOOD UREA INCREASED [None]
  - CONFUSIONAL STATE [None]
  - DIABETIC NEUROPATHY [None]
  - DISORIENTATION [None]
  - DRUG LEVEL INCREASED [None]
  - GLASGOW COMA SCALE ABNORMAL [None]
  - HAEMODIALYSIS [None]
  - HAEMOGLOBIN DECREASED [None]
  - HYPOREFLEXIA [None]
  - HYPOTONIA [None]
  - PARESIS [None]
  - RESPIRATORY RATE INCREASED [None]
  - TOXIC INDUCED ENCEPHALOPATHY [None]
  - VOMITING [None]
